FAERS Safety Report 19474491 (Version 1)
Quarter: 2021Q2

REPORT INFORMATION
  Report Type: Spontaneous
  Country: CN (occurrence: CN)
  Receive Date: 20210629
  Receipt Date: 20210629
  Transmission Date: 20210717
  Serious: Yes (Hospitalization)
  Sender: FDA-Public Use
  Company Number: CN-PFIZER INC-2021716836

PATIENT
  Age: 61 Year
  Sex: Female
  Weight: 45 kg

DRUGS (1)
  1. METHOTREXATE. [Suspect]
     Active Substance: METHOTREXATE
     Indication: ACUTE LYMPHOCYTIC LEUKAEMIA
     Dosage: 500 MG, 1X/DAY
     Route: 042
     Dates: start: 20210415, end: 20210416

REACTIONS (3)
  - Gastrointestinal disorder [Recovering/Resolving]
  - Vomiting [Recovering/Resolving]
  - Nausea [Recovering/Resolving]

NARRATIVE: CASE EVENT DATE: 20210416
